FAERS Safety Report 8498672 (Version 3)
Quarter: 2013Q2

REPORT INFORMATION
  Report Type: Spontaneous
  Country: RU (occurrence: RU)
  Receive Date: 20120409
  Receipt Date: 20130617
  Transmission Date: 20140414
  Serious: Yes (Other)
  Sender: FDA-Public Use
  Company Number: RU-BIOGENIDEC-2012BI011730

PATIENT
  Age: 47 Year
  Sex: Female
  Weight: 178 kg

DRUGS (2)
  1. TYSABRI [Suspect]
     Indication: MULTIPLE SCLEROSIS
     Route: 042
     Dates: start: 201111
  2. PERINDOPRIL [Concomitant]
     Dates: start: 2008

REACTIONS (1)
  - Rhinitis allergic [Not Recovered/Not Resolved]
